FAERS Safety Report 11400050 (Version 14)
Quarter: 2017Q4

REPORT INFORMATION
  Report Type: Spontaneous
  Country: US (occurrence: US)
  Receive Date: 20150820
  Receipt Date: 20171102
  Transmission Date: 20180320
  Serious: Yes (Death, Hospitalization)
  Sender: FDA-Public Use
  Company Number: US-ACTELION-A-NJ2015-122672

PATIENT
  Age: 61 Year
  Sex: Male
  Weight: 70.3 kg

DRUGS (5)
  1. ADEMPAS [Concomitant]
     Active Substance: RIOCIGUAT
     Dosage: 1 MG, UNK
  2. WARFARIN [Concomitant]
     Active Substance: WARFARIN
  3. DILTIAZEM. [Concomitant]
     Active Substance: DILTIAZEM
  4. OPSUMIT [Suspect]
     Active Substance: MACITENTAN
     Indication: PULMONARY HYPERTENSION
     Dosage: 10 MG, QD
     Route: 048
     Dates: start: 20150507
  5. TREPROSTINIL DIOLAMIN [Concomitant]
     Active Substance: TREPROSTINIL DIOLAMINE

REACTIONS (17)
  - International normalised ratio decreased [Unknown]
  - Fatigue [Unknown]
  - Respiratory failure [Recovered/Resolved]
  - Pulmonary arterial hypertension [Unknown]
  - Chronic obstructive pulmonary disease [Recovered/Resolved]
  - Pneumonia [Unknown]
  - Dizziness [Unknown]
  - Dyspnoea [Unknown]
  - Haematoma [Unknown]
  - Hypotension [Unknown]
  - Death [Fatal]
  - Condition aggravated [Unknown]
  - Oxygen saturation decreased [Unknown]
  - Atrial fibrillation [Unknown]
  - Treatment noncompliance [Unknown]
  - Constipation [Unknown]
  - Bronchitis [Unknown]

NARRATIVE: CASE EVENT DATE: 20171021
